FAERS Safety Report 8680040 (Version 2)
Quarter: 2013Q4

REPORT INFORMATION
  Report Type: Spontaneous
  Country: US (occurrence: US)
  Receive Date: 20120724
  Receipt Date: 20131101
  Transmission Date: 20140711
  Serious: Yes (Other)
  Sender: FDA-Public Use
  Company Number: US-009507513-1206USA02119

PATIENT
  Sex: Male
  Weight: 121.54 kg

DRUGS (21)
  1. JANUVIA [Suspect]
     Indication: TYPE 2 DIABETES MELLITUS
     Dosage: 50 MG, QD
     Route: 048
  2. PRINIVIL [Concomitant]
  3. LIPITOR [Concomitant]
     Dosage: 5 MG, QD
     Route: 048
  4. METFORMIN [Concomitant]
     Dosage: 500 MG, BID
     Route: 048
  5. POTASSIUM CHLORIDE [Concomitant]
     Dosage: 10 MEQ, QD
     Route: 048
  6. TRILIPIX [Concomitant]
     Dosage: 100, QD
     Route: 048
  7. CHOLECALCIFEROL [Concomitant]
     Dosage: 1000 IU, BID
     Route: 048
  8. ECOTRIN [Concomitant]
     Dosage: 325 MG, QD
     Route: 048
  9. CYANOCOBALAMIN [Concomitant]
     Dosage: 1000 IU, QD
     Route: 048
  10. FLUTICASONE [Concomitant]
     Dosage: 2 DF, HS
  11. LASIX (FUROSEMIDE) [Concomitant]
     Dosage: 20 MG, QD
     Route: 048
  12. GLIPIZIDE [Concomitant]
     Dosage: 2 MG, TID
     Route: 048
  13. LANTUS [Concomitant]
     Dosage: 65 IU, BID
     Route: 058
  14. HUMALOG [Concomitant]
     Dosage: 4 IU, UNK
     Route: 058
  15. HYDROCHLOROTHIAZIDE (+) LISINOPRIL [Concomitant]
     Dosage: 12.5MG/20 MG
     Route: 048
  16. VITAMINS (UNSPECIFIED) [Concomitant]
     Dosage: UNK, QD
     Route: 048
  17. LOVAZA [Concomitant]
     Dosage: 1000 MG, BID
     Route: 048
  18. TESTOSTERONE [Concomitant]
     Dosage: 1 ML, Q 2 WKS
     Route: 030
  19. VICODIN [Concomitant]
     Dosage: 1 PO, Q6H PRN
     Route: 048
  20. LORATADINE [Concomitant]
     Dosage: 10 MG, QD, PRN
     Route: 048
  21. VALTREX [Concomitant]
     Dosage: 1000 MG, QD, PRN

REACTIONS (1)
  - Pancreatitis acute [Unknown]
